FAERS Safety Report 13176917 (Version 2)
Quarter: 2017Q1

REPORT INFORMATION
  Report Type: Spontaneous
  Country: US (occurrence: US)
  Receive Date: 20170201
  Receipt Date: 20170213
  Transmission Date: 20170428
  Serious: Yes (Death, Hospitalization, Disabling, Other)
  Sender: FDA-Public Use
  Company Number: US-BAUSCH-BL-2017-002342

PATIENT
  Age: 74 Year
  Sex: Male

DRUGS (1)
  1. XIFAXAN [Suspect]
     Active Substance: RIFAXIMIN
     Indication: HEPATIC FAILURE
     Route: 048
     Dates: start: 20151030, end: 201701

REACTIONS (14)
  - Physical disability [Unknown]
  - Screaming [Unknown]
  - Eating disorder [Unknown]
  - Hospice care [Unknown]
  - Tremor [Unknown]
  - Fall [Unknown]
  - Hepatic cirrhosis [Fatal]
  - Dysphagia [Unknown]
  - Delirium [Unknown]
  - Throat cancer [Fatal]
  - Ammonia increased [Unknown]
  - Hypotension [Unknown]
  - Terminal state [Unknown]
  - Amnesia [Unknown]

NARRATIVE: CASE EVENT DATE: 201611
